FAERS Safety Report 5166905-1 (Version None)
Quarter: 2006Q4

REPORT INFORMATION
  Report Type: 
  Country: None (occurrence: None)
  Receive Date: 20061204
  Receipt Date: 20061204
  Transmission Date: 20070319
  Serious: Yes (Other)
  Sender: FDA-Public Use
  Company Number: None

PATIENT
  Sex: Male
  Weight: 88.4514 kg

DRUGS (1)
  1. PAXIL CR [Suspect]
     Indication: DEPRESSION
     Dosage: 12.5 MG ONCE A DAY PO
     Route: 048
     Dates: start: 20031101

REACTIONS (4)
  - ERECTILE DYSFUNCTION [None]
  - LIBIDO DECREASED [None]
  - ORGASM ABNORMAL [None]
  - SENSORY DISTURBANCE [None]
